FAERS Safety Report 9889652 (Version 1)
Quarter: 2014Q1

REPORT INFORMATION
  Report Type: Spontaneous
  Country: ES (occurrence: ES)
  Receive Date: 20140211
  Receipt Date: 20140211
  Transmission Date: 20141002
  Serious: Yes (Death, Hospitalization, Other)
  Sender: FDA-Public Use
  Company Number: ES-PFIZER INC-2014035134

PATIENT
  Age: 65 Year
  Sex: Male

DRUGS (10)
  1. CARDURAN NEO [Suspect]
     Indication: HYPERTENSION
     Dosage: 8 MG, 1X/DAY
     Route: 048
     Dates: start: 2013
  2. INCIVO [Suspect]
     Indication: CHRONIC HEPATITIS C
     Dosage: 1125 MG, 2X/DAY
     Route: 048
     Dates: start: 20130430, end: 20130723
  3. PEGINTRON [Suspect]
     Indication: CHRONIC HEPATITIS C
     Dosage: 150 UG, WEEKLY
     Route: 058
     Dates: start: 20130430
  4. PEGINTRON [Suspect]
     Dosage: 120 UG, WEEKLY
     Route: 058
     Dates: start: 20130528
  5. PEGINTRON [Suspect]
     Dosage: 100 UG, WEEKLY
     Route: 058
     Dates: start: 20130625, end: 20131230
  6. RIBAVIRIN [Suspect]
     Indication: CHRONIC HEPATITIS C
     Dosage: 600 MG, 2X/DAY
     Route: 048
     Dates: start: 20130430
  7. RIBAVIRIN [Suspect]
     Dosage: 400 MG, 2X/DAY
     Route: 048
     Dates: start: 20130611
  8. RIBAVIRIN [Suspect]
     Dosage: 600 MG/DAY (1-0-2)
     Route: 048
     Dates: start: 20130625
  9. RIBAVIRIN [Suspect]
     Dosage: 200 MG, 2X/DAY
     Route: 048
     Dates: start: 20130705
  10. RIBAVIRIN [Suspect]
     Dosage: 600 MG/DAY (1-0-2)
     Route: 048
     Dates: start: 20130705, end: 20140110

REACTIONS (5)
  - Acute myocardial infarction [Fatal]
  - Urinary tract infection [Unknown]
  - Pyrexia [Unknown]
  - Thrombocytopenia [Unknown]
  - Haemoglobin decreased [Unknown]
